FAERS Safety Report 17299053 (Version 1)
Quarter: 2020Q1

REPORT INFORMATION
  Report Type: Spontaneous
  Country: NL (occurrence: NL)
  Receive Date: 20200122
  Receipt Date: 20200122
  Transmission Date: 20200409
  Serious: Yes (Hospitalization)
  Sender: FDA-Public Use
  Company Number: NL-IPCA LABORATORIES LIMITED-IPC-2020-NL-000095

PATIENT

DRUGS (4)
  1. VALSARTAN. [Suspect]
     Active Substance: VALSARTAN
     Indication: ANGIOTENSIN CONVERTING ENZYME
     Dosage: UNK
     Route: 065
  2. LOSARTAN. [Suspect]
     Active Substance: LOSARTAN
     Indication: HYPONATRAEMIC SYNDROME
  3. ENALAPRIL [Suspect]
     Active Substance: ENALAPRIL
     Indication: ANGIOTENSIN CONVERTING ENZYME INCREASED
     Dosage: UNK
     Route: 065
  4. LOSARTAN. [Suspect]
     Active Substance: LOSARTAN
     Indication: THIRST
     Dosage: UNK
     Route: 065

REACTIONS (4)
  - Insomnia [Unknown]
  - Depressive symptom [Unknown]
  - Drug intolerance [Unknown]
  - Neuropsychiatric symptoms [Unknown]
